FAERS Safety Report 10377492 (Version 1)
Quarter: 2014Q3

REPORT INFORMATION
  Report Type: Spontaneous
  Country: JP (occurrence: JP)
  Receive Date: 20140812
  Receipt Date: 20140812
  Transmission Date: 20150326
  Serious: Yes (Other)
  Sender: FDA-Public Use
  Company Number: PHHY2014JP098562

PATIENT
  Age: 62 Year

DRUGS (1)
  1. ZOMETA [Suspect]
     Active Substance: ZOLEDRONIC ACID
     Dosage: 8 MG, DAILY

REACTIONS (2)
  - Osteonecrosis of jaw [Unknown]
  - Periodontitis [Unknown]
